FAERS Safety Report 8244477-2 (Version None)
Quarter: 2012Q1

REPORT INFORMATION
  Report Type: 
  Country: None (occurrence: None)
  Receive Date: 20120329
  Receipt Date: 20120319
  Transmission Date: 20120608
  Serious: No
  Sender: FDA-Public Use
  Company Number: US-JNJFOC-20120310866

PATIENT
  Age: 48 Year
  Sex: Female
  Weight: 82 kg

DRUGS (10)
  1. DUPLOPIRIN [Concomitant]
     Indication: DEPRESSION
     Route: 048
  2. PREDNISONE TAB [Concomitant]
     Indication: ADRENAL INSUFFICIENCY
     Route: 048
  3. HYDROCORTISONE [Concomitant]
     Indication: ADRENAL INSUFFICIENCY
     Route: 048
  4. INVEGA SUSTENNA [Suspect]
     Route: 030
     Dates: start: 20120228, end: 20120228
  5. MONTELUKAST [Concomitant]
     Indication: ASTHMA
     Route: 048
  6. ADVAIR DISKUS 100/50 [Concomitant]
     Indication: ASTHMA
     Route: 065
  7. INVEGA SUSTENNA [Suspect]
     Indication: SCHIZOPHRENIA
     Route: 030
     Dates: start: 20120310, end: 20120310
  8. FLUTICASONE FUROATE [Concomitant]
     Indication: MULTIPLE ALLERGIES
     Route: 045
  9. OMEPRAZOLE [Concomitant]
     Indication: GASTROOESOPHAGEAL REFLUX DISEASE
     Route: 048
  10. INVEGA [Concomitant]
     Indication: SCHIZOPHRENIA
     Dates: start: 20120309

REACTIONS (1)
  - INCORRECT DOSE ADMINISTERED [None]
